FAERS Safety Report 10420904 (Version 1)
Quarter: 2014Q3

REPORT INFORMATION
  Report Type: Spontaneous
  Country: US (occurrence: None)
  Receive Date: 20140714
  Receipt Date: 20140714
  Transmission Date: 20150326
  Serious: No
  Sender: FDA-Public Use
  Company Number: 2014US003264

PATIENT
  Age: 10 Year
  Sex: Female

DRUGS (5)
  1. VITAMIN B/C COMPLEX (ASCORBIC ACID, VITAMIN B COMPLEX) [Concomitant]
  2. ALLEGRA (FEXOFEXANADINE HYDROCHLORIDE) [Concomitant]
  3. METOCLOPRAMIDE. [Concomitant]
     Active Substance: METOCLOPRAMIDE
  4. PROMETHAZINE [Concomitant]
     Active Substance: PROMETHAZINE\PROMETHAZINE HYDROCHLORIDE
  5. ICLUSIG [Suspect]
     Active Substance: PONATINIB
     Indication: ACUTE LYMPHOCYTIC LEUKAEMIA
     Route: 048
     Dates: start: 20140501

REACTIONS (3)
  - Chills [None]
  - Off label use [None]
  - Pyrexia [None]

NARRATIVE: CASE EVENT DATE: 20140501
